FAERS Safety Report 20064559 (Version 1)
Quarter: 2021Q4

REPORT INFORMATION
  Report Type: Spontaneous
  Country: CA (occurrence: CA)
  Receive Date: 20211112
  Receipt Date: 20211112
  Transmission Date: 20220303
  Serious: Yes (Other)
  Sender: FDA-Public Use
  Company Number: CA-OTSUKA-2018_000226

PATIENT
  Age: 33 Year
  Sex: Male
  Weight: 79.38 kg

DRUGS (2)
  1. ABILIFY [Suspect]
     Active Substance: ARIPIPRAZOLE
     Indication: Schizophrenia
     Dosage: 1 DF, QD (1 EVERY 1 DAY)
     Route: 048
     Dates: start: 20150925
  2. ZYPREXA [Concomitant]
     Active Substance: OLANZAPINE
     Indication: Product used for unknown indication
     Dosage: UNK
     Route: 065

REACTIONS (11)
  - Mental impairment [Not Recovered/Not Resolved]
  - Atrial fibrillation [Unknown]
  - Prone position [Unknown]
  - Anhedonia [Not Recovered/Not Resolved]
  - Heart rate irregular [Unknown]
  - Hypoaesthesia [Unknown]
  - Apathy [Not Recovered/Not Resolved]
  - Depression [Not Recovered/Not Resolved]
  - Fatigue [Not Recovered/Not Resolved]
  - Illiteracy [Unknown]
  - Drug ineffective [Unknown]
